FAERS Safety Report 23065152 (Version 3)
Quarter: 2023Q4

REPORT INFORMATION
  Report Type: Spontaneous
  Country: US (occurrence: US)
  Receive Date: 20231013
  Receipt Date: 20231212
  Transmission Date: 20240110
  Serious: Yes (Other)
  Sender: FDA-Public Use
  Company Number: US-PFIZER INC-PV202300167215

PATIENT
  Age: 78 Year
  Sex: Female
  Weight: 56.689 kg

DRUGS (2)
  1. TALZENNA [Suspect]
     Active Substance: TALAZOPARIB TOSYLATE
     Indication: Breast cancer
     Dosage: 0.25 MG
  2. TALZENNA [Suspect]
     Active Substance: TALAZOPARIB TOSYLATE
     Dosage: 0.50 MG ONCE DAILY
     Dates: start: 202210, end: 202310

REACTIONS (4)
  - Anaemia [Unknown]
  - Lymphoedema [Unknown]
  - Weight decreased [Unknown]
  - Neoplasm progression [Unknown]
